FAERS Safety Report 18053169 (Version 2)
Quarter: 2021Q2

REPORT INFORMATION
  Report Type: Spontaneous
  Country: JP (occurrence: JP)
  Receive Date: 20200722
  Receipt Date: 20210518
  Transmission Date: 20210717
  Serious: Yes (Death, Other)
  Sender: FDA-Public Use
  Company Number: NVSJ2020JP005015

PATIENT

DRUGS (2)
  1. TAFINLAR [Suspect]
     Active Substance: DABRAFENIB MESYLATE
     Indication: NON-SMALL CELL LUNG CANCER
     Dosage: 300 MG
     Route: 048
     Dates: start: 20200428
  2. MEKINIST [Suspect]
     Active Substance: TRAMETINIB DIMETHYL SULFOXIDE
     Indication: NON-SMALL CELL LUNG CANCER
     Dosage: 2 MG
     Route: 048
     Dates: start: 20200428

REACTIONS (5)
  - Haemoptysis [Fatal]
  - Anaemia [Recovered/Resolved]
  - Non-small cell lung cancer [Fatal]
  - Metastasis [Fatal]
  - Malignant neoplasm progression [Fatal]

NARRATIVE: CASE EVENT DATE: 20200512
